FAERS Safety Report 8404098-5 (Version None)
Quarter: 2012Q2

REPORT INFORMATION
  Report Type: 
  Country: None (occurrence: None)
  Receive Date: 20120601
  Receipt Date: 20120530
  Transmission Date: 20120825
  Serious: Yes (Other)
  Sender: FDA-Public Use
  Company Number: GXKR2012DE001869

PATIENT

DRUGS (1)
  1. SIMVASTATIN [Suspect]
     Indication: LOW DENSITY LIPOPROTEIN INCREASED
     Dosage: 20 MG, UNK
     Route: 048
     Dates: start: 20110301, end: 20110901

REACTIONS (1)
  - C-REACTIVE PROTEIN INCREASED [None]
